FAERS Safety Report 22189661 (Version 1)
Quarter: 2023Q2

REPORT INFORMATION
  Report Type: Other
  Country: CA (occurrence: CA)
  Receive Date: 20230410
  Receipt Date: 20230410
  Transmission Date: 20230721
  Serious: Yes (Other)
  Sender: FDA-Public Use
  Company Number: CA-CELLTRION INC.-2023CA006567

PATIENT

DRUGS (20)
  1. RITUXIMAB [Suspect]
     Active Substance: RITUXIMAB
     Indication: Ocular pemphigoid
     Dosage: 1000.0 MILLIGRAM, 1 EVERY 15 DAYS
     Route: 042
  2. RITUXIMAB [Suspect]
     Active Substance: RITUXIMAB
     Indication: Intervertebral disc degeneration
  3. RITUXIMAB [Suspect]
     Active Substance: RITUXIMAB
     Indication: Fibromyalgia
  4. ACETAMINOPHEN [Concomitant]
     Active Substance: ACETAMINOPHEN
     Indication: Premedication
     Dosage: 650.0 MILLIGRAM
     Route: 048
  5. ASPIRIN [Concomitant]
     Active Substance: ASPIRIN
     Dosage: 81.0 MILLIGRAM, 1 EVERY 1 DAYS
     Route: 065
  6. BENADRYL [Concomitant]
     Active Substance: DIPHENHYDRAMINE HYDROCHLORIDE
     Indication: Premedication
     Dosage: 650.0 MILLIGRAM
     Route: 048
  7. DIPHENHYDRAMINE HYDROCHLORIDE [Concomitant]
     Active Substance: DIPHENHYDRAMINE HYDROCHLORIDE
     Indication: Premedication
     Dosage: 50.0 MILLIGRAM
     Route: 048
  8. DOXYCYCLINE [Concomitant]
     Active Substance: DOXYCYCLINE
     Indication: Eye inflammation
     Route: 065
  9. FINACEA [Concomitant]
     Active Substance: AZELAIC ACID
     Dosage: UNK, 1 EVERY 1 DAYS
     Route: 065
  10. FLUOROMETHOLONE [Concomitant]
     Active Substance: FLUOROMETHOLONE
     Dosage: 0.1 PERCENT
     Route: 065
  11. IBUPROFEN [Concomitant]
     Active Substance: IBUPROFEN
     Route: 065
  12. METHYLPREDNISOLONE [Concomitant]
     Active Substance: METHYLPREDNISOLONE
     Indication: Premedication
     Dosage: 100.0 MILLIGRAM
     Route: 042
  13. METHYLPREDNISOLONE SODIUM SUCCINATE [Concomitant]
     Active Substance: METHYLPREDNISOLONE SODIUM SUCCINATE
     Indication: Premedication
     Dosage: 100.0 MILLIGRAM
     Route: 042
  14. PANTOPRAZOLE [Concomitant]
     Active Substance: PANTOPRAZOLE
     Dosage: 40.0 MILLIGRAM, 1 EVERY 1 DAYS
     Route: 065
  15. ROSUVASTATIN [Concomitant]
     Active Substance: ROSUVASTATIN
     Dosage: 49.0 MILLIGRAM, 1 EVERY 1 DAYS
     Route: 065
  16. TAPENTADOL HYDROCHLORIDE [Concomitant]
     Active Substance: TAPENTADOL HYDROCHLORIDE
     Indication: Pain
     Route: 065
  17. TYLENOL [Concomitant]
     Active Substance: ACETAMINOPHEN
     Indication: Premedication
     Dosage: 650.0 MILLIGRAM
     Route: 048
  18. TYLENOL EXTRA STRENGTH [Concomitant]
     Active Substance: ACETAMINOPHEN
  19. ZOPICLONE [Concomitant]
     Active Substance: ZOPICLONE
     Dosage: 7.5 MILLIGRAM, 1 EVERY 1 DAYS
     Route: 065
  20. ZOPICLONE [Concomitant]
     Active Substance: ZOPICLONE

REACTIONS (14)
  - Anal pruritus [Recovered/Resolved]
  - Biliary colic [Recovered/Resolved]
  - Blood pressure diastolic abnormal [Recovered/Resolved]
  - Blood pressure measurement [Recovered/Resolved]
  - Eye inflammation [Recovered/Resolved]
  - Prostatomegaly [Recovered/Resolved]
  - Gallbladder disorder [Recovered/Resolved]
  - Hypertension [Recovered/Resolved]
  - Coronary artery disease [Recovered/Resolved]
  - Hypotension [Recovered/Resolved]
  - Malaise [Recovered/Resolved]
  - Oral herpes [Recovered/Resolved]
  - Weight decreased [Recovered/Resolved]
  - Off label use [Unknown]
